FAERS Safety Report 9483445 (Version 2)
Quarter: 2013Q3

REPORT INFORMATION
  Report Type: Spontaneous
  Country: CA (occurrence: CA)
  Receive Date: 20130828
  Receipt Date: 20130828
  Transmission Date: 20140515
  Serious: Yes (Hospitalization)
  Sender: FDA-Public Use
  Company Number: CA-AMGEN-KDL265980

PATIENT
  Age: 37 Year
  Sex: Male
  Weight: 65.8 kg

DRUGS (3)
  1. ENBREL [Suspect]
     Indication: PSORIASIS
     Dosage: 50 MG, 2 TIMES/WK
     Route: 058
     Dates: start: 20070619
  2. PHENOXYMETHYLPENICILLIN [Concomitant]
     Dosage: 300 MG, QID
  3. ACETAMINOPHEN [Concomitant]
     Dosage: UNK UNK, UNK

REACTIONS (3)
  - Streptococcal infection [Unknown]
  - Cough [Recovering/Resolving]
  - Oropharyngeal pain [Unknown]
